FAERS Safety Report 5385191-0 (Version None)
Quarter: 2007Q3

REPORT INFORMATION
  Report Type: 
  Country: None (occurrence: None)
  Receive Date: 20070712
  Receipt Date: 20070702
  Transmission Date: 20080115
  Serious: Yes (Hospitalization)
  Sender: FDA-Public Use
  Company Number: US-JNJFOC-20070405670

PATIENT
  Sex: Female
  Weight: 51.26 kg

DRUGS (11)
  1. DURAGESIC-100 [Suspect]
     Route: 062
  2. DURAGESIC-100 [Suspect]
     Indication: PAIN
     Route: 062
  3. FENTANYL TRANSDERMAL SYSTEM [Suspect]
     Indication: PAIN
     Route: 062
  4. BIRTH CONTROL MEDICATION [Concomitant]
     Indication: CONTRACEPTION
     Route: 048
  5. CREON [Concomitant]
     Indication: PANCREATIC ENZYMES
     Dosage: 3 WITH MEALS AND SNACKS
     Route: 048
  6. SUPPLEMENT [Concomitant]
     Indication: NUTRITIONAL SUPPORT
     Route: 048
  7. ZOFRAN [Concomitant]
     Route: 048
  8. ZOFRAN [Concomitant]
     Indication: NAUSEA
     Dosage: AS NEEDED
     Route: 048
  9. PROVENTIL-HFA [Concomitant]
     Indication: ASTHMA
     Dosage: AS NEEDED
     Route: 055
  10. FORTEO [Concomitant]
     Indication: OSTEOPOROSIS
     Route: 058
  11. LEXAPRO [Concomitant]
     Indication: DEPRESSION
     Route: 048

REACTIONS (4)
  - APPLICATION SITE PRURITUS [None]
  - PAIN [None]
  - PANCREATITIS CHRONIC [None]
  - WRONG TECHNIQUE IN DRUG USAGE PROCESS [None]
